FAERS Safety Report 7230663-7 (Version None)
Quarter: 2011Q1

REPORT INFORMATION
  Report Type: 
  Country: None (occurrence: None)
  Receive Date: 20110118
  Receipt Date: 20110104
  Transmission Date: 20110831
  Serious: Yes (Other)
  Sender: FDA-Public Use
  Company Number: PHHY2010AU84496

PATIENT
  Sex: Male

DRUGS (6)
  1. CYCLOSPORINE [Suspect]
     Dosage: 1.7 ML
     Dates: start: 19871101
  2. AZATHIOPRINE [Concomitant]
     Indication: RENAL TRANSPLANT
  3. CYCLOSPORINE [Suspect]
     Indication: RENAL TRANSPLANT
     Dosage: 2.6 ML
     Route: 048
     Dates: start: 19810101, end: 19850101
  4. CYCLOSPORINE [Suspect]
     Dosage: UNK
     Route: 048
     Dates: start: 19850101
  5. CYCLOSPORINE [Suspect]
     Dosage: 2 ML
     Dates: start: 19870101
  6. PREDNISOLONE [Concomitant]
     Indication: RENAL TRANSPLANT
     Dosage: 20 MG,
     Dates: start: 19870101

REACTIONS (11)
  - PERITONITIS [None]
  - RENAL FAILURE CHRONIC [None]
  - IMMUNOSUPPRESSANT DRUG LEVEL INCREASED [None]
  - KIDNEY TRANSPLANT REJECTION [None]
  - HAIR GROWTH ABNORMAL [None]
  - MASS [None]
  - RENAL FAILURE [None]
  - BLOOD CREATININE INCREASED [None]
  - VASCULAR CALCIFICATION [None]
  - KIDNEY FIBROSIS [None]
  - ARTERIAL INJURY [None]
